FAERS Safety Report 5131236-2 (Version None)
Quarter: 2006Q4

REPORT INFORMATION
  Report Type: 
  Country: None (occurrence: None)
  Receive Date: 20061018
  Receipt Date: 20061018
  Transmission Date: 20070319
  Serious: No
  Sender: FDA-Public Use
  Company Number: None

PATIENT
  Age: 71 Year
  Sex: Female

DRUGS (2)
  1. CORDARONE [Suspect]
     Dosage: IV DRIP
     Route: 041
     Dates: start: 20060905, end: 20060905
  2. CARDENE [Suspect]
     Dosage: FOR SBP OVER 130 IV DRIP
     Route: 041

REACTIONS (2)
  - DRUG DISPENSING ERROR [None]
  - MEDICATION ERROR [None]
